FAERS Safety Report 24767308 (Version 3)
Quarter: 2025Q1

REPORT INFORMATION
  Report Type: Spontaneous
  Country: US (occurrence: US)
  Receive Date: 20241223
  Receipt Date: 20250109
  Transmission Date: 20250409
  Serious: Yes (Life-Threatening, Other)
  Sender: BAXTER
  Company Number: US-BAXTER-2024BAX029652

PATIENT

DRUGS (4)
  1. VASOPRESSIN [Suspect]
     Active Substance: VASOPRESSIN
     Indication: Gastrointestinal haemorrhage
     Route: 041
  2. VASOPRESSIN [Suspect]
     Active Substance: VASOPRESSIN
     Route: 041
  3. LEVOPHED [Suspect]
     Active Substance: NOREPINEPHRINE BITARTRATE
     Indication: Gastrointestinal haemorrhage
     Route: 041
  4. LEVOPHED [Suspect]
     Active Substance: NOREPINEPHRINE BITARTRATE
     Route: 041

REACTIONS (6)
  - Hypotension [Unknown]
  - Hypertension [Unknown]
  - Accidental underdose [Unknown]
  - Device kink [Unknown]
  - Device alarm issue [Unknown]
  - Device infusion issue [Unknown]
